FAERS Safety Report 17505917 (Version 2)
Quarter: 2020Q1

REPORT INFORMATION
  Report Type: Report from Study
  Country: US (occurrence: US)
  Receive Date: 20200306
  Receipt Date: 20200312
  Transmission Date: 20200409
  Serious: Yes (Other)
  Sender: FDA-Public Use
  Company Number: US-ROCHE-2558841

PATIENT
  Age: 65 Year
  Sex: Female
  Weight: 67.6 kg

DRUGS (4)
  1. BEVACIZUMAB. [Suspect]
     Active Substance: BEVACIZUMAB
     Indication: NON-SMALL CELL LUNG CANCER
     Dosage: ON 29/JAN/2020, THE PATIENT RECEIVED MOST RECENT DOSE 1000 MG PRIOR TO EVENT.
     Route: 042
     Dates: start: 20190710, end: 20200219
  2. PEMETREXED. [Suspect]
     Active Substance: PEMETREXED
     Indication: NON-SMALL CELL LUNG CANCER
     Dosage: ON 31/JAN/2020, THE PATIENT RECEIVED MOST RECENT DOSE 850 MG PRIOR TO EVENT.
     Route: 042
     Dates: start: 20190710, end: 20200219
  3. CARBOPLATIN. [Suspect]
     Active Substance: CARBOPLATIN
     Indication: NON-SMALL CELL LUNG CANCER
     Dosage: AUC 5?ON 12/SEP/2019, THE PATIENT RECEIVED MOST RECENT DOSE PRIOR TO EVENT.
     Route: 042
     Dates: start: 20190710, end: 20200219
  4. ATEZOLIZUMAB. [Suspect]
     Active Substance: ATEZOLIZUMAB
     Indication: NON-SMALL CELL LUNG CANCER
     Dosage: ON 29/JAN/2020, PATIENT RECEIVED MOST RECENT DOSE 1200 MG PRIOR TO EVENT.
     Route: 042
     Dates: start: 20190710, end: 20200219

REACTIONS (1)
  - Embolism [Recovering/Resolving]

NARRATIVE: CASE EVENT DATE: 20200218
